FAERS Safety Report 20142675 (Version 1)
Quarter: 2021Q4

REPORT INFORMATION
  Report Type: Spontaneous
  Country: US (occurrence: None)
  Receive Date: 20211202
  Receipt Date: 20211202
  Transmission Date: 20220303
  Serious: No
  Sender: FDA-Public Use
  Company Number: US-ROCHE-2697592

PATIENT
  Sex: Male
  Weight: 108.96 kg

DRUGS (2)
  1. LUCENTIS [Suspect]
     Active Substance: RANIBIZUMAB
     Indication: Neovascular age-related macular degeneration
     Dosage: INJECTION AT AROUND 9-12 WEEKS AND SOMETIMES A LITTLE LONGER AND?SOMETIMES HCP DOES NOT ADMINISTER U
     Route: 050
  2. TRIAMTERENE [Concomitant]
     Active Substance: TRIAMTERENE
     Indication: Hypertension

REACTIONS (5)
  - Visual acuity reduced [Not Recovered/Not Resolved]
  - Eye inflammation [Unknown]
  - Photophobia [Not Recovered/Not Resolved]
  - Intentional product misuse [Unknown]
  - Off label use [Unknown]
